FAERS Safety Report 6654794-5 (Version None)
Quarter: 2010Q1

REPORT INFORMATION
  Report Type: 
  Country: None (occurrence: None)
  Receive Date: 20100328
  Receipt Date: 20100319
  Transmission Date: 20100710
  Serious: Yes (Hospitalization)
  Sender: FDA-Public Use
  Company Number: JP-BRISTOL-MYERS SQUIBB COMPANY-15029358

PATIENT
  Age: 78 Year
  Sex: Male

DRUGS (5)
  1. TAXOL [Suspect]
     Indication: NON-SMALL CELL LUNG CANCER
     Dosage: ONCE A WEEK FOR 2 DAYS
     Route: 041
     Dates: start: 20100302, end: 20100309
  2. PARAPLATIN [Suspect]
     Dosage: 1 D.F:AUC=5
     Route: 041
     Dates: start: 20100302
  3. GRANISETRON HCL [Concomitant]
     Route: 041
  4. DEXART [Concomitant]
     Route: 041
  5. FAMOTIDINE [Concomitant]
     Dosage: D.I.V 1A ONCE A WEEK FOR 2 DAYS
     Route: 041
     Dates: start: 20100302, end: 20100309

REACTIONS (3)
  - ATRIOVENTRICULAR BLOCK [None]
  - ELECTROCARDIOGRAM ABNORMAL [None]
  - LOSS OF CONSCIOUSNESS [None]
